FAERS Safety Report 14115077 (Version 3)
Quarter: 2018Q1

REPORT INFORMATION
  Report Type: Not Available
  Country: US (occurrence: US)
  Receive Date: 20171023
  Receipt Date: 20180122
  Transmission Date: 20180508
  Serious: No
  Sender: FDA-Public Use
  Company Number: US-NEUROCRINE BIOSCIENCES INC.-2017NBI00807

PATIENT
  Age: 70 Year
  Sex: Male

DRUGS (7)
  1. TRILEPTAL [Concomitant]
     Active Substance: OXCARBAZEPINE
     Indication: TREMOR
     Dates: start: 201707, end: 20170729
  2. VRAYLAR [Concomitant]
     Active Substance: CARIPRAZINE
     Indication: FORMICATION
     Dates: start: 20170608
  3. INGREZZA [Suspect]
     Active Substance: VALBENAZINE
     Indication: TARDIVE DYSKINESIA
     Route: 048
     Dates: start: 20170721, end: 20170801
  4. NEURONTIN [Concomitant]
     Active Substance: GABAPENTIN
  5. LITHIUM. [Concomitant]
     Active Substance: LITHIUM
     Route: 048
  6. TRILEPTAL [Concomitant]
     Active Substance: OXCARBAZEPINE
     Indication: ANXIETY
     Dates: start: 20170831
  7. CRANBERRY CAPSULES [Concomitant]

REACTIONS (3)
  - Feeling jittery [Recovered/Resolved]
  - Nervousness [Not Recovered/Not Resolved]
  - Tremor [Not Recovered/Not Resolved]

NARRATIVE: CASE EVENT DATE: 20170728
